FAERS Safety Report 14977544 (Version 2)
Quarter: 2018Q4

REPORT INFORMATION
  Report Type: Spontaneous
  Country: US (occurrence: US)
  Receive Date: 20180606
  Receipt Date: 20181122
  Transmission Date: 20190204
  Serious: No
  Sender: FDA-Public Use
  Company Number: US-ASTRAZENECA-2018SE61898

PATIENT
  Age: 30384 Day
  Sex: Male
  Weight: 97.1 kg

DRUGS (1)
  1. BYDUREON [Suspect]
     Active Substance: EXENATIDE
     Indication: TYPE 2 DIABETES MELLITUS
     Route: 058
     Dates: start: 20180416

REACTIONS (7)
  - Bowel movement irregularity [Not Recovered/Not Resolved]
  - Dizziness [Unknown]
  - Gastrointestinal pain [Unknown]
  - Injection site mass [Unknown]
  - Weight decreased [Unknown]
  - Asthenia [Recovered/Resolved]
  - Needle issue [Unknown]

NARRATIVE: CASE EVENT DATE: 20180423
